FAERS Safety Report 23686893 (Version 1)
Quarter: 2024Q1

REPORT INFORMATION
  Report Type: Spontaneous
  Country: US (occurrence: None)
  Receive Date: 20240328
  Receipt Date: 20240328
  Transmission Date: 20240409
  Serious: Yes (Other)
  Sender: FDA-Public Use
  Company Number: None

PATIENT
  Age: 54 Year
  Sex: Female
  Weight: 67.5 kg

DRUGS (1)
  1. MOUNJARO [Suspect]
     Active Substance: TIRZEPATIDE
     Indication: Weight decreased
     Dates: start: 20240228, end: 20240313

REACTIONS (8)
  - Tachycardia [None]
  - Blood pressure increased [None]
  - Malaise [None]
  - Diarrhoea [None]
  - Nausea [None]
  - Hypophagia [None]
  - Hypobarism [None]
  - Blood glucose increased [None]

NARRATIVE: CASE EVENT DATE: 20240313
